FAERS Safety Report 6979238-5 (Version None)
Quarter: 2010Q3

REPORT INFORMATION
  Report Type: 
  Country: None (occurrence: None)
  Receive Date: 20100824
  Receipt Date: 20100624
  Transmission Date: 20110219
  Serious: No
  Sender: FDA-Public Use
  Company Number: 310695

PATIENT
  Age: 64 Year
  Sex: Male

DRUGS (4)
  1. VICTOZA [Suspect]
     Dosage: 1.8 MG, QD, SUBCUTANEOUS, 1.2 MG, QD, SUBCUTANEOUS
     Route: 058
     Dates: start: 20100520
  2. NOVOLOG [Concomitant]
  3. LANTUS [Concomitant]
  4. FISH OIL (FISH OIL) [Concomitant]

REACTIONS (1)
  - DYSPEPSIA [None]
